FAERS Safety Report 6721318-3 (Version None)
Quarter: 2010Q2

REPORT INFORMATION
  Report Type: 
  Country: None (occurrence: None)
  Receive Date: 20100512
  Receipt Date: 20100430
  Transmission Date: 20101027
  Serious: Yes (Hospitalization, Other)
  Sender: FDA-Public Use
  Company Number: PHEH2009US18082

PATIENT
  Sex: Female

DRUGS (17)
  1. EXJADE [Suspect]
     Indication: SERUM FERRITIN INCREASED
     Dosage: 250 MG, BID
     Route: 048
     Dates: start: 20090715
  2. EXJADE [Suspect]
     Dosage: UNK
  3. ONDANSETRON [Concomitant]
     Dosage: 8 MG
     Route: 048
  4. FENTANYL [Concomitant]
     Dosage: 25 UG, UNK
  5. POTASSIUM CHLORIDE [Concomitant]
     Route: 048
  6. LORAZEPAM [Concomitant]
     Dosage: 1 MG, UNK
     Route: 048
  7. CHLORHEXIDINE GLUCONATE [Concomitant]
     Dosage: 15 ML, UNK
     Route: 048
  8. CYMBALTA [Concomitant]
     Dosage: 30 MG, UNK
     Route: 048
  9. PREVACID [Concomitant]
     Dosage: 30 MG, UNK
     Route: 048
  10. CLARITIN [Concomitant]
     Dosage: 10 MG
  11. MEGACE [Concomitant]
     Dosage: 825 MG/5 ML
  12. REGLAN [Concomitant]
     Dosage: 10 MG
  13. MORPHINE [Concomitant]
     Dosage: 10 MG
     Route: 048
  14. MIRALAX [Concomitant]
  15. SCOPOLAMINE [Concomitant]
     Dosage: 1.5 MG
  16. SODIUM CHLORIDE [Concomitant]
     Dosage: 1 GRAM
  17. URSODIOL [Concomitant]
     Dosage: 300 MG
     Route: 048

REACTIONS (5)
  - BACK PAIN [None]
  - CYTOREDUCTIVE SURGERY [None]
  - MALIGNANT NEOPLASM PROGRESSION [None]
  - STAPHYLOCOCCAL INFECTION [None]
  - VERTEBRAL COLUMN MASS [None]
